FAERS Safety Report 15273022 (Version 1)
Quarter: 2018Q3

REPORT INFORMATION
  Report Type: Spontaneous
  Country: US (occurrence: US)
  Receive Date: 20180813
  Receipt Date: 20180813
  Transmission Date: 20181010
  Serious: No
  Sender: FDA-Public Use
  Company Number: US-PURDUE-USA-2018-0143823

PATIENT
  Age: 40 Year
  Sex: Female

DRUGS (3)
  1. BUTRANS [Suspect]
     Active Substance: BUPRENORPHINE
     Indication: PRODUCT USED FOR UNKNOWN INDICATION
     Dosage: 15 MCG/HR, WEEKLY
     Route: 062
     Dates: start: 20180516, end: 20180529
  2. BUTRANS [Suspect]
     Active Substance: BUPRENORPHINE
     Dosage: 5 MCG/HR WEEKLY
     Route: 062
     Dates: start: 20180503, end: 20180510
  3. BUTRANS [Suspect]
     Active Substance: BUPRENORPHINE
     Dosage: TWO 5 MCG/HR PATCHES, WEEKLY
     Route: 062

REACTIONS (5)
  - Application site discolouration [Not Recovered/Not Resolved]
  - Drug ineffective [Recovered/Resolved]
  - Application site irritation [Unknown]
  - Application site pain [Unknown]
  - Application site burn [Recovered/Resolved]

NARRATIVE: CASE EVENT DATE: 201805
